FAERS Safety Report 24021519 (Version 2)
Quarter: 2024Q2

REPORT INFORMATION
  Report Type: Report from Study
  Country: DE (occurrence: DE)
  Receive Date: 20240627
  Receipt Date: 20240627
  Transmission Date: 20240715
  Serious: No
  Sender: FDA-Public Use
  Company Number: DE-ROCHE-3567843

PATIENT
  Age: 55 Year
  Sex: Female

DRUGS (1)
  1. COLUMVI [Suspect]
     Active Substance: GLOFITAMAB-GXBM
     Indication: Diffuse large B-cell lymphoma
     Dosage: LAST DOSE: //2023
     Route: 042
     Dates: start: 2023

REACTIONS (1)
  - Cytokine release syndrome [Recovered/Resolved]

NARRATIVE: CASE EVENT DATE: 20230101
